FAERS Safety Report 6038468-X (Version None)
Quarter: 2009Q1

REPORT INFORMATION
  Report Type: 
  Country: None (occurrence: None)
  Receive Date: 20090115
  Receipt Date: 20080801
  Transmission Date: 20090719
  Serious: Yes (Other)
  Sender: FDA-Public Use
  Company Number: US-KINGPHARMUSA00001-K200800915

PATIENT
  Age: 39 Year
  Sex: Male
  Weight: 77.098 kg

DRUGS (1)
  1. EPIPEN [Suspect]
     Dosage: .3 MG, SINGLE
     Dates: start: 20080731, end: 20080731

REACTIONS (6)
  - ACCIDENTAL EXPOSURE [None]
  - EXPIRED DRUG ADMINISTERED [None]
  - INJECTION SITE DISCOLOURATION [None]
  - INJECTION SITE PAIN [None]
  - INJECTION SITE PALLOR [None]
  - INJECTION SITE PARAESTHESIA [None]
